FAERS Safety Report 4586060-6 (Version None)
Quarter: 2005Q1

REPORT INFORMATION
  Report Type: 
  Country: None (occurrence: None)
  Receive Date: 20050125
  Receipt Date: 20040908
  Transmission Date: 20050727
  Serious: No
  Sender: FDA-Public Use
  Company Number: USA040977669

PATIENT
  Age: 58 Year
  Sex: Female
  Weight: 67 kg

DRUGS (5)
  1. FORTEO [Suspect]
     Indication: OSTEOPOROSIS
     Dates: start: 20040401
  2. NORVASC [Concomitant]
  3. NEXIUM [Suspect]
  4. CORTICOSTEROID NOS [Concomitant]
  5. BENICAR [Concomitant]

REACTIONS (3)
  - BACK PAIN [None]
  - DIFFICULTY IN WALKING [None]
  - KIDNEY INFECTION [None]
